FAERS Safety Report 8769625 (Version 3)
Quarter: 2013Q3

REPORT INFORMATION
  Report Type: Spontaneous
  Country: US (occurrence: US)
  Receive Date: 20120905
  Receipt Date: 20130903
  Transmission Date: 20140515
  Serious: Yes (Hospitalization)
  Sender: FDA-Public Use
  Company Number: US-ACTELION-A-NJ2012-70980

PATIENT
  Age: 55 Year
  Sex: Female

DRUGS (11)
  1. TRACLEER [Suspect]
     Indication: PULMONARY ARTERIAL HYPERTENSION
     Dosage: 125 MG, BID
     Route: 048
     Dates: start: 20101013
  2. VERAPAMIL [Concomitant]
     Dosage: 360 MG, QD
     Dates: start: 2010
  3. ADVAIR [Concomitant]
     Dosage: 250/50 MCG BID
     Dates: start: 201101
  4. SYNTHROID [Concomitant]
     Dosage: 150 MCG, QD
     Dates: start: 1983
  5. FLONASE [Concomitant]
     Dosage: 2 PUFF, QD
     Dates: start: 2010
  6. PROBENECID [Concomitant]
     Dosage: 500 MG, QD
     Dates: start: 2008
  7. LASIX [Concomitant]
     Dosage: 20 MG, BID
     Dates: start: 201203
  8. METFORMIN [Concomitant]
     Dosage: 1000 MG, BID
     Dates: start: 2007
  9. TOPROL [Concomitant]
     Dosage: 50 MG, BID
     Dates: start: 2000
  10. NEURONTIN [Concomitant]
     Dosage: 300 MG, TID
     Dates: start: 2011
  11. SPIRIVA [Concomitant]
     Dosage: 18 MCG, QD
     Dates: start: 2000

REACTIONS (3)
  - Cerebrovascular accident [Not Recovered/Not Resolved]
  - Visual impairment [Not Recovered/Not Resolved]
  - Tooth abscess [Recovered/Resolved]
